FAERS Safety Report 7168902-3 (Version None)
Quarter: 2010Q4

REPORT INFORMATION
  Report Type: 
  Country: None (occurrence: None)
  Receive Date: 20101216
  Receipt Date: 20100114
  Transmission Date: 20110411
  Serious: No
  Sender: FDA-Public Use
  Company Number: US-AMGEN-TCS386099

PATIENT

DRUGS (2)
  1. ENBREL [Suspect]
     Indication: RHEUMATOID ARTHRITIS
     Dosage: 50 MG, QWK
     Route: 058
     Dates: start: 19990701
  2. METHOTREXATE [Concomitant]
     Dosage: 25 MG, QWK
     Route: 058

REACTIONS (9)
  - DYSPHAGIA [None]
  - EAR INFECTION [None]
  - HEADACHE [None]
  - INJECTION SITE PAIN [None]
  - MUSCLE SWELLING [None]
  - MUSCULOSKELETAL PAIN [None]
  - NECK PAIN [None]
  - PAIN IN JAW [None]
  - SENSATION OF FOREIGN BODY [None]
